FAERS Safety Report 7791783-1 (Version None)
Quarter: 2011Q4

REPORT INFORMATION
  Report Type: 
  Country: None (occurrence: None)
  Receive Date: 20111003
  Receipt Date: 20110927
  Transmission Date: 20120403
  Serious: No
  Sender: FDA-Public Use
  Company Number: US-PFIZER INC-2011231398

PATIENT
  Sex: Female
  Weight: 64.853 kg

DRUGS (9)
  1. LIPITOR [Suspect]
     Dosage: 10 MG, DAILY
     Dates: start: 20110101
  2. CARBIDOPA [Concomitant]
     Indication: PARKINSONISM
     Dosage: 10 MG, 3X/DAY
  3. KEPPRA [Concomitant]
     Indication: CONVULSION
     Dosage: 750 MG, 2X/DAY
  4. BUSPAR [Concomitant]
     Indication: NERVOUS SYSTEM DISORDER
     Dosage: 5 MG, 2X/DAY
  5. LIPITOR [Suspect]
     Indication: BLOOD CHOLESTEROL INCREASED
     Dosage: UNK
     Dates: end: 20110101
  6. OXYBUTYNIN [Concomitant]
     Indication: BLADDER DISORDER
     Dosage: 10 MG, DAILY
  7. NAMENDA [Concomitant]
     Indication: MEMORY IMPAIRMENT
     Dosage: 10 MG, 2X/DAY
  8. ARICEPT [Concomitant]
     Indication: MEMORY IMPAIRMENT
     Dosage: 5 MG, DAILY AT NIGHT
  9. VITAMIN D [Concomitant]
     Dosage: 50000 MG, 2X/DAY

REACTIONS (1)
  - MUSCLE SPASMS [None]
